FAERS Safety Report 11144323 (Version 2)
Quarter: 2016Q4

REPORT INFORMATION
  Report Type: Spontaneous
  Country: US (occurrence: US)
  Receive Date: 20150526
  Receipt Date: 20161116
  Transmission Date: 20170206
  Serious: No
  Sender: FDA-Public Use
  Company Number: US-PFIZER INC-2015172073

PATIENT
  Age: 82 Year
  Sex: Female
  Weight: 80.73 kg

DRUGS (8)
  1. METOPROLOL. [Concomitant]
     Active Substance: METOPROLOL
     Indication: BLOOD PRESSURE ABNORMAL
     Dosage: UNK, 1X/DAY
  2. TRAVATAN [Concomitant]
     Active Substance: TRAVOPROST
     Indication: CATARACT OPERATION
     Dosage: 1 GTT, 2X/DAY
     Route: 047
  3. LISINOPRIL. [Concomitant]
     Active Substance: LISINOPRIL
     Indication: BLOOD PRESSURE ABNORMAL
     Dosage: 1 DF, 1X/DAY
  4. FUROSEMIDE. [Concomitant]
     Active Substance: FUROSEMIDE
     Indication: BLOOD PRESSURE ABNORMAL
     Dosage: 70 MG, UNK
  5. AROMASIN [Suspect]
     Active Substance: EXEMESTANE
     Indication: BREAST CANCER
     Dosage: 25 MG, 1X/DAY (AFTER A MEAL)
     Route: 048
     Dates: start: 2013
  6. TIMOLOL. [Concomitant]
     Active Substance: TIMOLOL
     Indication: CATARACT OPERATION
     Dosage: 1 GTT, 2X/DAY
     Route: 047
  7. LEVOTHYROXINE. [Concomitant]
     Active Substance: LEVOTHYROXINE
     Indication: THYROID DISORDER
     Dosage: UNK, 1X/DAY
  8. ARIDIL [Concomitant]
     Indication: EYE DISORDER
     Dosage: 1 DF, DAILY
     Dates: start: 2016

REACTIONS (8)
  - Condition aggravated [Not Recovered/Not Resolved]
  - Drug hypersensitivity [Unknown]
  - Rhinorrhoea [Unknown]
  - Cough [Unknown]
  - Swelling [Unknown]
  - Vitamin D decreased [Unknown]
  - Poor peripheral circulation [Not Recovered/Not Resolved]
  - Oedema peripheral [Unknown]

NARRATIVE: CASE EVENT DATE: 2014
